FAERS Safety Report 20110230 (Version 2)
Quarter: 2021Q4

REPORT INFORMATION
  Report Type: Spontaneous
  Country: US (occurrence: US)
  Receive Date: 20211124
  Receipt Date: 20211221
  Transmission Date: 20220303
  Serious: Yes (Hospitalization, Other)
  Sender: FDA-Public Use
  Company Number: US-PFIZER INC-202101619647

PATIENT
  Age: 33 Year
  Sex: Female
  Weight: 68.04 kg

DRUGS (4)
  1. GABAPENTIN [Suspect]
     Active Substance: GABAPENTIN
     Indication: Skin burning sensation
     Dosage: 300 UNK
     Dates: start: 1996, end: 202109
  2. GABAPENTIN [Suspect]
     Active Substance: GABAPENTIN
     Indication: Neurotransmitter level altered
  3. GABAPENTIN [Suspect]
     Active Substance: GABAPENTIN
     Indication: Dysaesthesia
  4. LUVOX [Concomitant]
     Active Substance: FLUVOXAMINE MALEATE
     Dosage: UNK
     Dates: start: 199609

REACTIONS (12)
  - Drug dependence [Not Recovered/Not Resolved]
  - Drug withdrawal syndrome [Not Recovered/Not Resolved]
  - Agitation [Unknown]
  - Akathisia [Not Recovered/Not Resolved]
  - Muscle spasms [Not Recovered/Not Resolved]
  - Muscle twitching [Not Recovered/Not Resolved]
  - Skin burning sensation [Not Recovered/Not Resolved]
  - Myalgia [Not Recovered/Not Resolved]
  - Arthralgia [Not Recovered/Not Resolved]
  - Tinnitus [Unknown]
  - Gastrointestinal disorder [Not Recovered/Not Resolved]
  - Off label use [Unknown]

NARRATIVE: CASE EVENT DATE: 19960101
